FAERS Safety Report 24326108 (Version 1)
Quarter: 2024Q3

REPORT INFORMATION
  Report Type: Report from Study
  Country: GB (occurrence: GB)
  Receive Date: 20240917
  Receipt Date: 20240917
  Transmission Date: 20241016
  Serious: Yes (Hospitalization)
  Sender: UCB
  Company Number: GB-UCBSA-2024045316

PATIENT
  Sex: Female

DRUGS (1)
  1. BIMEKIZUMAB [Suspect]
     Active Substance: BIMEKIZUMAB
     Indication: Psoriasis
     Dosage: UNK
     Route: 058
     Dates: start: 202406

REACTIONS (1)
  - Colitis [Unknown]

NARRATIVE: CASE EVENT DATE: 20240101
